FAERS Safety Report 9229845 (Version 1)
Quarter: 2013Q2

REPORT INFORMATION
  Report Type: Spontaneous
  Country: US (occurrence: US)
  Receive Date: 20130415
  Receipt Date: 20130415
  Transmission Date: 20140414
  Serious: No
  Sender: FDA-Public Use
  Company Number: US-009507513-1304USA005001

PATIENT
  Sex: Male

DRUGS (3)
  1. VICTRELIS [Suspect]
     Dosage: UNK
     Route: 048
     Dates: start: 20130212
  2. PEGINTRON [Suspect]
  3. REBETOL [Suspect]
     Route: 048

REACTIONS (7)
  - Suicidal ideation [Unknown]
  - Depression [Unknown]
  - Vomiting [Unknown]
  - Abdominal discomfort [Unknown]
  - Oesophagitis [Unknown]
  - Gastritis [Unknown]
  - Drug hypersensitivity [Unknown]
